FAERS Safety Report 10658041 (Version 2)
Quarter: 2014Q4

REPORT INFORMATION
  Report Type: Report from Study
  Country: DE (occurrence: DE)
  Receive Date: 20141217
  Receipt Date: 20141217
  Transmission Date: 20150529
  Serious: Yes (Other)
  Sender: FDA-Public Use
  Company Number: DE-TEVA-464991GER

PATIENT
  Age: 33 Year
  Sex: Female
  Weight: 82.8 kg

DRUGS (3)
  1. L-THYROXIN 50 [Concomitant]
     Active Substance: LEVOTHYROXINE SODIUM
     Dosage: SINCE 13TH WEEK OF GESTATION
  2. COPAXONE [Suspect]
     Active Substance: GLATIRAMER ACETATE
     Indication: MULTIPLE SCLEROSIS
     Route: 058
     Dates: start: 20130211, end: 201312
  3. FOLIO FORTE [Concomitant]
     Active Substance: FOLIC ACID\VITAMINS
     Dosage: DURING PREGNANCY

REACTIONS (1)
  - Foetal death [Recovered/Resolved]

NARRATIVE: CASE EVENT DATE: 20140419
